FAERS Safety Report 8337988-2 (Version None)
Quarter: 2012Q2

REPORT INFORMATION
  Report Type: 
  Country: None (occurrence: None)
  Receive Date: 20120504
  Receipt Date: 20120424
  Transmission Date: 20120825
  Serious: Yes (Other)
  Sender: FDA-Public Use
  Company Number: JP-JNJFOC-20120413232

PATIENT

DRUGS (3)
  1. ITRACONAZOLE [Suspect]
     Dosage: CYCLE 2
     Route: 048
  2. AN UNKNOWN MEDICATION [Concomitant]
     Route: 065
  3. ITRACONAZOLE [Suspect]
     Indication: ONYCHOMYCOSIS
     Dosage: CYCLE 1
     Route: 048

REACTIONS (2)
  - DYSSTASIA [None]
  - LOSS OF CONSCIOUSNESS [None]
